FAERS Safety Report 7132048-0 (Version None)
Quarter: 2010Q4

REPORT INFORMATION
  Report Type: 
  Country: None (occurrence: None)
  Receive Date: 20101202
  Receipt Date: 20101118
  Transmission Date: 20110411
  Serious: Yes (Hospitalization)
  Sender: FDA-Public Use
  Company Number: PHHY2010FR79756

PATIENT
  Age: 78 Year
  Sex: Male

DRUGS (2)
  1. TASIGNA [Suspect]
     Indication: CHRONIC MYELOID LEUKAEMIA
     Dosage: 400 MG, BID
     Route: 048
     Dates: start: 20090801
  2. NEORECORMON [Suspect]
     Indication: ANAEMIA

REACTIONS (5)
  - ARTERIAL THROMBOSIS LIMB [None]
  - ARTERITIS [None]
  - DIPLOPIA [None]
  - EXTREMITY NECROSIS [None]
  - TOE AMPUTATION [None]
